FAERS Safety Report 25239306 (Version 3)
Quarter: 2025Q2

REPORT INFORMATION
  Report Type: Spontaneous
  Country: GR (occurrence: GR)
  Receive Date: 20250425
  Receipt Date: 20250609
  Transmission Date: 20250716
  Serious: Yes (Other)
  Sender: PFIZER
  Company Number: GR-PFIZER INC-PV202500047436

PATIENT
  Age: 15 Year
  Sex: Male
  Weight: 65 kg

DRUGS (6)
  1. NGENLA [Suspect]
     Active Substance: SOMATROGON-GHLA
     Indication: Hypopituitarism
     Dosage: 40 MG, WEEKLY
     Route: 058
     Dates: start: 202408
  2. ARIMIDEX [Concomitant]
     Active Substance: ANASTROZOLE
     Indication: Precocious puberty
  3. ARIMIDEX [Concomitant]
     Active Substance: ANASTROZOLE
  4. ARIMIDEX [Concomitant]
     Active Substance: ANASTROZOLE
  5. OXANDROLONE [Concomitant]
     Active Substance: OXANDROLONE
     Indication: Precocious puberty
  6. LEVOTHYROXINE [Concomitant]
     Active Substance: LEVOTHYROXINE
     Indication: Hypothyroidism

REACTIONS (4)
  - Upper limb fracture [Recovering/Resolving]
  - Somnolence [Not Recovered/Not Resolved]
  - Product communication issue [Recovered/Resolved]
  - Off label use [Unknown]

NARRATIVE: CASE EVENT DATE: 20240801
